FAERS Safety Report 21260218 (Version 7)
Quarter: 2022Q4

REPORT INFORMATION
  Report Type: Report from Study
  Country: ES (occurrence: None)
  Receive Date: 20220826
  Receipt Date: 20221101
  Transmission Date: 20230113
  Serious: Yes (Hospitalization)
  Sender: FDA-Public Use
  Company Number: ES-Eisai Medical Research-EC-2022-120494

PATIENT
  Age: 56 Year
  Sex: Female
  Weight: 70 kg

DRUGS (9)
  1. LENVATINIB [Suspect]
     Active Substance: LENVATINIB
     Indication: Renal cell carcinoma
     Route: 048
     Dates: start: 20220630, end: 20220728
  2. LENVATINIB [Suspect]
     Active Substance: LENVATINIB
     Route: 048
     Dates: start: 20220831
  3. QUAVONLIMAB [Suspect]
     Active Substance: QUAVONLIMAB
     Indication: Renal cell carcinoma
     Dosage: QUAVONLIMAB 25 MG [+] PEMBROLIZUMAB 400 MG
     Route: 041
     Dates: start: 20220630, end: 20220630
  4. PEMBROLIZUMAB [Suspect]
     Active Substance: PEMBROLIZUMAB
     Dosage: QUAVONLIMAB 25 MG [+] PEMBROLIZUMAB 400 MG
     Route: 041
     Dates: start: 20220825
  5. BUDESONIDE [Concomitant]
     Active Substance: BUDESONIDE
     Dates: start: 202205
  6. FORMOTEROL FUMARATE [Concomitant]
     Active Substance: FORMOTEROL FUMARATE
     Dates: start: 202205
  7. ABSTRAL [Concomitant]
     Active Substance: FENTANYL CITRATE
     Dates: start: 20220629
  8. FENTANYL [Concomitant]
     Active Substance: FENTANYL
     Dates: start: 20220707
  9. ENALAPRIL [Concomitant]
     Active Substance: ENALAPRIL
     Dates: start: 20220720, end: 20220907

REACTIONS (1)
  - Pancreatitis [Recovered/Resolved]

NARRATIVE: CASE EVENT DATE: 20220728
